FAERS Safety Report 14433341 (Version 1)
Quarter: 2018Q1

REPORT INFORMATION
  Report Type: Spontaneous
  Country: US (occurrence: US)
  Receive Date: 20180124
  Receipt Date: 20180124
  Transmission Date: 20180509
  Serious: No
  Sender: FDA-Public Use
  Company Number: US-PCCINC-T201606896

PATIENT

DRUGS (2)
  1. GABLOFEN [Suspect]
     Active Substance: BACLOFEN
     Indication: MUSCLE SPASTICITY
     Dosage: 1041 MCG/DAY
     Route: 037
     Dates: start: 20160928, end: 20161019
  2. GABLOFEN [Suspect]
     Active Substance: BACLOFEN
     Indication: STIFF PERSON SYNDROME

REACTIONS (4)
  - Incision site inflammation [Unknown]
  - Implant site infection [Unknown]
  - Incision site swelling [Unknown]
  - Incision site complication [Unknown]

NARRATIVE: CASE EVENT DATE: 20161018
